FAERS Safety Report 15988682 (Version 8)
Quarter: 2019Q4

REPORT INFORMATION
  Report Type: Report from Study
  Country: None (occurrence: US)
  Receive Date: 20190221
  Receipt Date: 20191218
  Transmission Date: 20200122
  Serious: Yes (Hospitalization, Other)
  Sender: FDA-Public Use
  Company Number: US-ABBVIE-19K-163-2669525-00

PATIENT
  Sex: Female
  Weight: 108.51 kg

DRUGS (3)
  1. HUMIRA [Suspect]
     Active Substance: ADALIMUMAB
     Indication: RHEUMATOID ARTHRITIS
     Route: 058
     Dates: start: 201801, end: 201804
  2. HUMIRA [Suspect]
     Active Substance: ADALIMUMAB
     Indication: RHEUMATOID ARTHRITIS
     Dosage: CITRATE FREE
     Route: 058
     Dates: start: 2018, end: 20190313
  3. HUMIRA [Suspect]
     Active Substance: ADALIMUMAB
     Route: 058
     Dates: start: 20190413

REACTIONS (9)
  - Pain in extremity [Recovered/Resolved]
  - Post procedural swelling [Unknown]
  - Myalgia [Recovering/Resolving]
  - Staphylococcal infection [Recovered/Resolved]
  - Pain [Recovering/Resolving]
  - Infection [Recovering/Resolving]
  - Device dislocation [Recovered/Resolved]
  - Pain in extremity [Not Recovered/Not Resolved]
  - Muscle disorder [Unknown]

NARRATIVE: CASE EVENT DATE: 2018
